FAERS Safety Report 4659087-3 (Version None)
Quarter: 2005Q2

REPORT INFORMATION
  Report Type: 
  Country: None (occurrence: None)
  Receive Date: 20050502
  Receipt Date: 20050301
  Transmission Date: 20051028
  Serious: No
  Sender: FDA-Public Use
  Company Number: 200418545US

PATIENT
  Age: 48 Year
  Sex: Female
  Weight: 92 kg

DRUGS (1)
  1. KETEK [Suspect]
     Indication: BRONCHITIS
     Dosage: 800 MG
     Dates: start: 20041025

REACTIONS (4)
  - BLOOD CREATINE PHOSPHOKINASE INCREASED [None]
  - INFLAMMATION [None]
  - MUSCLE SPASMS [None]
  - MYOSITIS [None]
